FAERS Safety Report 14430934 (Version 2)
Quarter: 2018Q1

REPORT INFORMATION
  Report Type: Spontaneous
  Country: HK (occurrence: HK)
  Receive Date: 20180124
  Receipt Date: 20180213
  Transmission Date: 20180509
  Serious: Yes (Other)
  Sender: FDA-Public Use
  Company Number: HK-BEH-2018086925

PATIENT

DRUGS (2)
  1. HUMAN IMMUNOGLOBULIN IV BMW (INN) [Suspect]
     Active Substance: HUMAN IMMUNOGLOBULIN G
     Indication: ENTEROVIRUS MYOCARDITIS
     Route: 042
  2. HUMAN IMMUNOGLOBULIN IV BMW (INN) [Suspect]
     Active Substance: HUMAN IMMUNOGLOBULIN G
     Indication: ENCEPHALITIS

REACTIONS (4)
  - Haemolysis [Recovered/Resolved]
  - Fibrin increased [Recovered/Resolved]
  - Platelet aggregation abnormal [Recovered/Resolved]
  - Haemoglobinuria [Recovered/Resolved]
